FAERS Safety Report 9771694 (Version 1)
Quarter: 2013Q4

REPORT INFORMATION
  Report Type: Spontaneous
  Country: CH (occurrence: CH)
  Receive Date: 20131219
  Receipt Date: 20131219
  Transmission Date: 20140711
  Serious: Yes (Other)
  Sender: FDA-Public Use
  Company Number: CH-ROCHE-1320820

PATIENT
  Sex: Female

DRUGS (4)
  1. XELODA [Suspect]
     Indication: BREAST CANCER
     Route: 048
     Dates: start: 201208, end: 201304
  2. HERCEPTIN [Suspect]
     Indication: BREAST CANCER
     Route: 065
     Dates: start: 201306, end: 201310
  3. TAXOL [Suspect]
     Indication: BREAST CANCER
     Route: 065
     Dates: start: 201306, end: 201310
  4. NAVELBINE [Concomitant]

REACTIONS (3)
  - Facial paresis [Unknown]
  - Disease progression [Unknown]
  - Thrombocytopenia [Unknown]
